FAERS Safety Report 7741732-7 (Version None)
Quarter: 2011Q3

REPORT INFORMATION
  Report Type: 
  Country: None (occurrence: None)
  Receive Date: 20110912
  Receipt Date: 20110901
  Transmission Date: 20111222
  Serious: Yes (Hospitalization)
  Sender: FDA-Public Use
  Company Number: US-BIOGENIDEC-2010BI010275

PATIENT
  Age: 50 Year
  Sex: Female

DRUGS (1)
  1. AVONEX [Suspect]
     Indication: MULTIPLE SCLEROSIS
     Route: 030
     Dates: start: 20000403

REACTIONS (9)
  - PAIN IN EXTREMITY [None]
  - MUSCLE RIGIDITY [None]
  - ANAPHYLACTIC SHOCK [None]
  - MOBILITY DECREASED [None]
  - CATHETERISATION CARDIAC [None]
  - SURGERY [None]
  - ARTHRALGIA [None]
  - BACK PAIN [None]
  - STAPHYLOCOCCAL INFECTION [None]
